FAERS Safety Report 5775158-2 (Version None)
Quarter: 2008Q2

REPORT INFORMATION
  Report Type: 
  Country: None (occurrence: None)
  Receive Date: 20080617
  Receipt Date: 20080612
  Transmission Date: 20081010
  Serious: Yes (Death, Hospitalization)
  Sender: FDA-Public Use
  Company Number: PT-BRISTOL-MYERS SQUIBB COMPANY-13997259

PATIENT
  Age: 55 Year
  Sex: Male

DRUGS (5)
  1. REYATAZ [Suspect]
     Indication: DYSLIPIDAEMIA
     Route: 048
     Dates: start: 20071028, end: 20071201
  2. REYATAZ [Suspect]
     Indication: LIPODYSTROPHY ACQUIRED
     Route: 048
     Dates: start: 20071028, end: 20071201
  3. RITONAVIR [Suspect]
     Dates: start: 20071001
  4. ABACAVIR + LAMIVUDINE [Suspect]
     Dosage: 1 DOSAGE FORM = 600/300MG
     Dates: start: 20071001
  5. PRAVASTATIN [Concomitant]
     Dates: start: 20060101, end: 20071201

REACTIONS (3)
  - MULTI-ORGAN FAILURE [None]
  - PNEUMONIA [None]
  - SEPTIC SHOCK [None]
